FAERS Safety Report 10924389 (Version 2)
Quarter: 2015Q2

REPORT INFORMATION
  Report Type: Spontaneous
  Country: US (occurrence: US)
  Receive Date: 20150318
  Receipt Date: 20150524
  Transmission Date: 20150821
  Serious: No
  Sender: FDA-Public Use
  Company Number: US-JNJFOC-20140615378

PATIENT
  Sex: Female

DRUGS (1)
  1. KETOCONAZOLE 2% [Suspect]
     Active Substance: KETOCONAZOLE
     Indication: PSORIATIC ARTHROPATHY
     Route: 061
     Dates: start: 201306, end: 201306

REACTIONS (2)
  - Therapeutic response unexpected [Recovered/Resolved]
  - Product use issue [Not Recovered/Not Resolved]

NARRATIVE: CASE EVENT DATE: 201306
